FAERS Safety Report 6822458-0 (Version None)
Quarter: 2010Q3

REPORT INFORMATION
  Report Type: 
  Country: None (occurrence: None)
  Receive Date: 20100708
  Receipt Date: 20100628
  Transmission Date: 20110219
  Serious: Yes (Hospitalization)
  Sender: FDA-Public Use
  Company Number: US-BAYER-201026414NA

PATIENT
  Age: 83 Year
  Sex: Female

DRUGS (25)
  1. CIPRO [Suspect]
     Indication: PRODUCT USED FOR UNKNOWN INDICATION
     Dosage: TOTAL DAILY DOSE: 1000 MG  UNIT DOSE: 500 MG
     Route: 048
     Dates: start: 20100327, end: 20100405
  2. FLAGYL [Suspect]
     Indication: PRODUCT USED FOR UNKNOWN INDICATION
     Dosage: TOTAL DAILY DOSE: 2000 MG  UNIT DOSE: 500 MG
     Dates: start: 20100327, end: 20100405
  3. PIRFENIDONE [Suspect]
     Indication: IDIOPATHIC PULMONARY FIBROSIS
     Dosage: ESCALATED DOSE
     Route: 048
     Dates: start: 20080912, end: 20080925
  4. PIRFENIDONE [Suspect]
     Dates: end: 20080818
  5. PIRFENIDONE [Suspect]
     Route: 048
     Dates: start: 20080926
  6. SYNTHROID [Concomitant]
  7. VITAMINS [Concomitant]
  8. EXTRA STRENGTH TYLENOL [Concomitant]
  9. IBUPROFEN [Concomitant]
  10. METHYLCELLULOSE [Concomitant]
  11. SENOKOT [Concomitant]
  12. VITAMIN C [Concomitant]
  13. VITAMIN E [Concomitant]
  14. GLUCOSAMINE/CHONDROITIN [Concomitant]
  15. OMEGA Q PLUS [Concomitant]
  16. CALCIUM CITRATE/VITAMIN D [Concomitant]
  17. PROBIOTICS [Concomitant]
  18. PREVACID [Concomitant]
  19. ZANTAC [Concomitant]
  20. MECLIZINE [Concomitant]
  21. DRAMAMINE [Concomitant]
  22. ANTIVERT [Concomitant]
  23. MILK OF MAGNESIA TAB [Concomitant]
     Indication: IMPAIRED GASTRIC EMPTYING
  24. MIRALAX [Concomitant]
     Indication: IMPAIRED GASTRIC EMPTYING
  25. TRIAMCINOLONE [Concomitant]

REACTIONS (2)
  - NAUSEA [None]
  - VOMITING [None]
